FAERS Safety Report 10423816 (Version 2)
Quarter: 2014Q4

REPORT INFORMATION
  Report Type: Spontaneous
  Country: US (occurrence: None)
  Receive Date: 20140722
  Receipt Date: 20141020
  Transmission Date: 20150528
  Serious: Yes (Other)
  Sender: FDA-Public Use
  Company Number: AEGR000547

PATIENT
  Age: 54 Year
  Sex: Female
  Weight: 55.3 kg

DRUGS (20)
  1. FLEXERIL [Concomitant]
     Active Substance: CYCLOBENZAPRINE HYDROCHLORIDE
  2. ZETIA [Concomitant]
     Active Substance: EZETIMIBE
  3. JUXTAPID [Suspect]
     Active Substance: LOMITAPIDE MESYLATE
     Indication: TYPE IIA HYPERLIPIDAEMIA
     Route: 048
     Dates: start: 201310, end: 20131218
  4. ASPIRIN (ACETYLSALICYLIC ACID) [Concomitant]
     Active Substance: ASPIRIN
  5. CYMBALTA [Concomitant]
     Active Substance: DULOXETINE HYDROCHLORIDE
  6. PROPRANOLOL (PROPRANOLOL HYDROCHLORIDE) [Concomitant]
  7. ALBUTEROL (SALBUTAMOL SULFATE) [Concomitant]
  8. XANAX [Concomitant]
     Active Substance: ALPRAZOLAM
  9. SYMBICORT [Concomitant]
     Active Substance: BUDESONIDE\FORMOTEROL FUMARATE DIHYDRATE
  10. GABAPENTIN (GABAPENTIN) [Concomitant]
     Active Substance: GABAPENTIN
  11. CRESTOR [Concomitant]
     Active Substance: ROSUVASTATIN CALCIUM
  12. PROAIR HFA [Concomitant]
     Active Substance: ALBUTEROL SULFATE
  13. DEXILANT [Concomitant]
     Active Substance: DEXLANSOPRAZOLE
  14. TRILIPIX [Concomitant]
     Active Substance: FENOFIBRIC ACID
  15. LAMICTAL [Concomitant]
     Active Substance: LAMOTRIGINE
  16. NIASPAN (NICOTINIC ACID) [Concomitant]
  17. OXYBUTIN (OXYBUTYNIN HYDROCHLORIDE) [Concomitant]
  18. BRIMONIDINE TARTRATE (BRIMONIDINE TARTRATE) [Concomitant]
     Active Substance: BRIMONIDINE TARTRATE
  19. SEROQUEL [Concomitant]
     Active Substance: QUETIAPINE FUMARATE
  20. TRAVATANZ (TRAVOPROST) [Concomitant]

REACTIONS (1)
  - Diarrhoea [None]

NARRATIVE: CASE EVENT DATE: 201312
